FAERS Safety Report 7837944 (Version 2)
Quarter: 2015Q2

REPORT INFORMATION
  Report Type: Report from Study
  Country: ES (occurrence: ES)
  Receive Date: 20110302
  Receipt Date: 20150528
  Transmission Date: 20150821
  Serious: Yes (Hospitalization)
  Sender: FDA-Public Use
  Company Number: ES-ASTRAZENECA-2011SE09734

PATIENT
  Age: 74 Year
  Sex: Male

DRUGS (5)
  1. PAROXETINE [Interacting]
     Active Substance: PAROXETINE\PAROXETINE HYDROCHLORIDE
     Dosage: DAILY
     Route: 048
     Dates: end: 20091125
  2. STALEVO [Concomitant]
     Active Substance: CARBIDOPA\ENTACAPONE\LEVODOPA
     Route: 048
     Dates: end: 20091127
  3. SEROQUEL [Suspect]
     Active Substance: QUETIAPINE FUMARATE
     Indication: DEMENTIA
     Route: 048
     Dates: start: 20091102, end: 20091127
  4. EXELON [Interacting]
     Active Substance: RIVASTIGMINE TARTRATE
     Route: 048
     Dates: end: 20091129
  5. AZILECT [Concomitant]
     Active Substance: RASAGILINE MESYLATE
     Route: 048
     Dates: end: 20091127

REACTIONS (2)
  - Confusional state [Not Recovered/Not Resolved]
  - Drug interaction [Unknown]

NARRATIVE: CASE EVENT DATE: 20091110
